FAERS Safety Report 13717459 (Version 1)
Quarter: 2017Q3

REPORT INFORMATION
  Report Type: Spontaneous
  Country: RU (occurrence: RU)
  Receive Date: 20170705
  Receipt Date: 20170705
  Transmission Date: 20171127
  Serious: Yes (Death, Hospitalization, Other)
  Sender: FDA-Public Use
  Company Number: RU-GLAXOSMITHKLINE-RU2017GSK103039

PATIENT
  Age: 32 Year
  Sex: Female

DRUGS (14)
  1. DILTIAZEM. [Suspect]
     Active Substance: DILTIAZEM
  2. DIGOXIN. [Suspect]
     Active Substance: DIGOXIN
  3. CEFTRIAXONE. [Suspect]
     Active Substance: CEFTRIAXONE
  4. NADROPARIN [Suspect]
     Active Substance: NADROPARIN
  5. CAPTOPRIL. [Suspect]
     Active Substance: CAPTOPRIL
  6. MYCOSYST [Suspect]
     Active Substance: FLUCONAZOLE
  7. VEROSPIRON [Suspect]
     Active Substance: SPIRONOLACTONE
  8. VERAPAMIL [Suspect]
     Active Substance: VERAPAMIL HYDROCHLORIDE
  9. QUAMATEL [Suspect]
     Active Substance: FAMOTIDINE
  10. VASOPRESSIN. [Suspect]
     Active Substance: VASOPRESSIN
  11. METROGYL [Suspect]
     Active Substance: METRONIDAZOLE
  12. VENTOLIN [Suspect]
     Active Substance: ALBUTEROL SULFATE
  13. LASIX [Suspect]
     Active Substance: FUROSEMIDE
  14. ACETYLSALICYLIC ACID [Suspect]
     Active Substance: ASPIRIN

REACTIONS (2)
  - Cardiogenic shock [Fatal]
  - Pulmonary embolism [Fatal]
